FAERS Safety Report 25698258 (Version 1)
Quarter: 2025Q3

REPORT INFORMATION
  Report Type: Other
  Country: IN (occurrence: IN)
  Receive Date: 20250819
  Receipt Date: 20250819
  Transmission Date: 20251021
  Serious: Yes (Hospitalization)
  Sender: DEXCEL LTD.
  Company Number: IN-DEXPHARM-2025-4233

PATIENT
  Age: 84 Year
  Sex: Male

DRUGS (4)
  1. ATRACURIUM [Interacting]
     Active Substance: ATRACURIUM
     Indication: General anaesthesia
  2. DONEPEZIL [Interacting]
     Active Substance: DONEPEZIL
     Indication: Dementia
     Dosage: ONCE AT NIGHT
  3. OLANZAPINE [Concomitant]
     Active Substance: OLANZAPINE
     Dosage: ONCE AT NIGHT
  4. QUETIAPINE [Concomitant]
     Active Substance: QUETIAPINE
     Dosage: ONCE AT NIGHT

REACTIONS (3)
  - Drug interaction [Unknown]
  - Drug resistance [Unknown]
  - Neuromuscular blockade [Unknown]
